FAERS Safety Report 6824392-9 (Version None)
Quarter: 2010Q3

REPORT INFORMATION
  Report Type: 
  Country: None (occurrence: None)
  Receive Date: 20100708
  Receipt Date: 20061024
  Transmission Date: 20110219
  Serious: No
  Sender: FDA-Public Use
  Company Number: US-PFIZER INC-2006130699

PATIENT
  Sex: Male
  Weight: 84.37 kg

DRUGS (10)
  1. CHANTIX [Suspect]
     Indication: SMOKING CESSATION THERAPY
     Dates: start: 20061010
  2. TAMSULOSIN HCL [Concomitant]
  3. HYZAAR [Concomitant]
     Indication: BLOOD PRESSURE
  4. VALIUM [Concomitant]
  5. FOLIC ACID [Concomitant]
  6. VITAMINS [Concomitant]
  7. THEOPHYLLINE [Concomitant]
  8. ADVAIR DISKUS 100/50 [Concomitant]
  9. ALBUTEROL [Concomitant]
  10. COMBIVENT [Concomitant]

REACTIONS (2)
  - HYPERHIDROSIS [None]
  - INSOMNIA [None]
